FAERS Safety Report 8367931-1 (Version None)
Quarter: 2012Q2

REPORT INFORMATION
  Report Type: 
  Country: None (occurrence: None)
  Receive Date: 20120517
  Receipt Date: 20120508
  Transmission Date: 20120825
  Serious: No
  Sender: FDA-Public Use
  Company Number: US-ASTRAZENECA-2012SE29892

PATIENT
  Age: 76 Year
  Sex: Female

DRUGS (13)
  1. ARICEPT [Concomitant]
     Indication: MEMORY IMPAIRMENT
     Dosage: EVERY EVENING
     Route: 048
  2. SEROQUEL [Suspect]
     Route: 048
  3. ACETAMINOPHEN [Concomitant]
     Indication: PAIN
     Route: 048
  4. IBUPROFEN [Concomitant]
     Indication: PAIN
     Route: 048
  5. MAG-OX [Concomitant]
     Route: 048
  6. SEROQUEL [Suspect]
     Route: 048
  7. SEROQUEL [Suspect]
     Route: 048
  8. IBUPROFEN [Concomitant]
     Route: 048
  9. SEROQUEL [Suspect]
     Indication: ABNORMAL BEHAVIOUR
     Route: 048
  10. SEROQUEL [Suspect]
     Route: 048
  11. IMODIUM CAPLET [Concomitant]
     Indication: DIARRHOEA
     Dosage: 1 AFTER EACH LOOSE STOOL
     Route: 048
  12. ACETAMINOPHEN [Concomitant]
     Route: 048
  13. SEROQUEL [Suspect]
     Indication: DEMENTIA
     Route: 048

REACTIONS (10)
  - COUGH [None]
  - GASTROOESOPHAGEAL REFLUX DISEASE [None]
  - SEDATION [None]
  - ARTHRITIS [None]
  - BIPOLAR DISORDER [None]
  - HYPOTHYROIDISM [None]
  - ARTHROPATHY [None]
  - WHEEZING [None]
  - CONSTIPATION [None]
  - OFF LABEL USE [None]
